FAERS Safety Report 7045883-4 (Version None)
Quarter: 2010Q4

REPORT INFORMATION
  Report Type: 
  Country: None (occurrence: None)
  Receive Date: 20101014
  Receipt Date: 20101001
  Transmission Date: 20110411
  Serious: Yes (Other)
  Sender: FDA-Public Use
  Company Number: PHHY2010US65878

PATIENT
  Sex: Female

DRUGS (9)
  1. ENABLEX [Suspect]
     Dosage: 7.5 MG
     Route: 048
  2. TOPROL-XL [Suspect]
  3. SYNTHROID [Concomitant]
  4. PRILOSEC [Concomitant]
  5. PAXIL [Concomitant]
  6. LORTAB [Concomitant]
  7. XANAX [Concomitant]
  8. XALATAN [Concomitant]
  9. ZOCOR [Concomitant]

REACTIONS (7)
  - ABDOMINAL DISCOMFORT [None]
  - ARTHRITIS [None]
  - DRY EYE [None]
  - DRY THROAT [None]
  - DYSPHAGIA [None]
  - GLAUCOMA [None]
  - TONGUE DRY [None]
